FAERS Safety Report 4866278-5 (Version None)
Quarter: 2005Q4

REPORT INFORMATION
  Report Type: 
  Country: None (occurrence: None)
  Receive Date: 20051221
  Receipt Date: 20051208
  Transmission Date: 20060501
  Serious: Yes (Death)
  Sender: FDA-Public Use
  Company Number: US-2005-018844

PATIENT
  Age: 63 Year
  Sex: Female

DRUGS (4)
  1. BETASERON [Suspect]
     Indication: MULTIPLE SCLEROSIS
     Dosage: SUBCUTANEOUS
     Route: 058
     Dates: start: 19940328, end: 20050906
  2. NEURONTIN [Concomitant]
  3. TIZANIDINE HCL [Concomitant]
  4. NORTRIPTYLINE (NORTRIPTYLINE) [Concomitant]

REACTIONS (1)
  - CEREBROVASCULAR ACCIDENT [None]
